FAERS Safety Report 6369526-8 (Version None)
Quarter: 2009Q3

REPORT INFORMATION
  Report Type: 
  Country: None (occurrence: None)
  Receive Date: 20090917
  Receipt Date: 20090903
  Transmission Date: 20100115
  Serious: Yes (Disabling, Other)
  Sender: FDA-Public Use
  Company Number: ALA_00355_2009

PATIENT
  Sex: Female

DRUGS (4)
  1. REGLAN [Suspect]
     Indication: IMPAIRED GASTRIC EMPTYING
     Dosage: 5 MG QID ORAL; 5 MG TID ORAL; 5 MG BID ORAL
     Route: 048
     Dates: start: 20090301, end: 20090401
  2. REGLAN [Suspect]
     Indication: IMPAIRED GASTRIC EMPTYING
     Dosage: 5 MG QID ORAL; 5 MG TID ORAL; 5 MG BID ORAL
     Route: 048
     Dates: start: 20090401, end: 20090501
  3. REGLAN [Suspect]
     Indication: IMPAIRED GASTRIC EMPTYING
     Dosage: 5 MG QID ORAL; 5 MG TID ORAL; 5 MG BID ORAL
     Route: 048
     Dates: start: 20090501, end: 20090805
  4. HUMIRA [Concomitant]

REACTIONS (7)
  - BEDRIDDEN [None]
  - BONE PAIN [None]
  - CHROMATURIA [None]
  - CONDITION AGGRAVATED [None]
  - MUSCLE RIGIDITY [None]
  - PULMONARY SARCOIDOSIS [None]
  - SKIN ODOUR ABNORMAL [None]
